FAERS Safety Report 7525774-2 (Version None)
Quarter: 2011Q2

REPORT INFORMATION
  Report Type: 
  Country: None (occurrence: None)
  Receive Date: 20110606
  Receipt Date: 20110531
  Transmission Date: 20111010
  Serious: Yes (Hospitalization)
  Sender: FDA-Public Use
  Company Number: JP-GENZYME-FABR-1001941

PATIENT
  Sex: Female
  Weight: 38 kg

DRUGS (14)
  1. FABRAZYME [Suspect]
     Indication: FABRY'S DISEASE
     Dosage: 0.7 MG/KG, Q4W
     Route: 042
     Dates: start: 20091124, end: 20101130
  2. FUROSEMIDE [Concomitant]
     Indication: FABRY'S DISEASE
     Dosage: 40 MG, QD
  3. CARVEDILOL [Concomitant]
     Indication: FABRY'S DISEASE
     Dosage: 2.5 MG, QD
     Dates: start: 20101213
  4. FAMOTIDINE [Concomitant]
     Indication: PRODUCT USED FOR UNKNOWN INDICATION
     Dosage: 20 MG, QD
  5. FABRAZYME [Suspect]
     Dosage: 25 MG, Q2W
     Route: 042
     Dates: start: 20101214
  6. SPIRONOLACTONE [Concomitant]
     Indication: FABRY'S DISEASE
     Dosage: 25 MG, QD
  7. ASPIRIN [Concomitant]
     Indication: FABRY'S DISEASE
     Dosage: 100 MG, QD
     Dates: start: 20110112
  8. POTASSIUM CHLORIDE [Concomitant]
     Indication: PRODUCT USED FOR UNKNOWN INDICATION
     Dosage: 600 MG, QD
     Dates: start: 20101005
  9. MOSAPRIDE CITRATE [Concomitant]
     Indication: PRODUCT USED FOR UNKNOWN INDICATION
     Dosage: UNK
  10. TRICHLORMETHIAZIDE [Concomitant]
     Indication: FABRY'S DISEASE
     Dosage: 2 MG, QD
     Dates: start: 20090609
  11. FABRAZYME [Suspect]
     Dosage: 50 MG, Q2W
     Route: 042
     Dates: start: 20041005, end: 20091124
  12. ALLOPURINOL [Concomitant]
     Indication: PRODUCT USED FOR UNKNOWN INDICATION
     Dosage: 100 MG, QD
  13. WARFARIN POTASSIUM [Concomitant]
     Indication: PRODUCT USED FOR UNKNOWN INDICATION
     Dosage: 2 MG, QD
  14. CLOSTRIDIUM BUTYRICUM [Concomitant]
     Indication: PRODUCT USED FOR UNKNOWN INDICATION
     Dosage: 40 MG, TID

REACTIONS (1)
  - CARDIAC FAILURE [None]
